FAERS Safety Report 8541155-7 (Version None)
Quarter: 2012Q3

REPORT INFORMATION
  Report Type: 
  Country: None (occurrence: None)
  Receive Date: 20120726
  Receipt Date: 20120719
  Transmission Date: 20120928
  Serious: Yes (Hospitalization)
  Sender: FDA-Public Use
  Company Number: CA-UCBSA-062292

PATIENT
  Age: 45 Year
  Sex: Female

DRUGS (7)
  1. CIMZIA [Suspect]
     Indication: ANKYLOSING SPONDYLITIS
     Route: 058
     Dates: start: 20120710
  2. PERCOCET [Concomitant]
     Indication: ANALGESIC THERAPY
     Dosage: 4-6 TABS DAILY
     Route: 048
  3. TEMAZEPAM [Concomitant]
     Indication: INSOMNIA
     Dosage: AT BED TIME
     Route: 048
  4. INSULIN [Concomitant]
     Indication: DIABETES MELLITUS
     Dates: start: 20120419
  5. ATACAND [Concomitant]
     Indication: HYPERTENSION
     Route: 048
  6. OXYCONTIN [Concomitant]
     Indication: ANALGESIC THERAPY
     Dosage: 1-2 TABS.OD
     Route: 048
  7. TAPAZOLE [Concomitant]
     Indication: BASEDOW'S DISEASE
     Route: 048

REACTIONS (3)
  - OEDEMA PERIPHERAL [None]
  - HYPERGLYCAEMIA [None]
  - HYPOTENSION [None]
